FAERS Safety Report 9147055 (Version 1)
Quarter: 2013Q1

REPORT INFORMATION
  Report Type: Spontaneous
  Country: US (occurrence: US)
  Receive Date: 20130307
  Receipt Date: 20130307
  Transmission Date: 20140127
  Serious: No
  Sender: FDA-Public Use
  Company Number: US-009507513-1302USA011198

PATIENT
  Sex: Female

DRUGS (4)
  1. GANIRELIX ACETATE INJECTION [Suspect]
     Indication: IN VITRO FERTILISATION
     Dosage: 250 MICROGRAM, UNK, SYRINGE TAKEN 5-6 DAYS
  2. GONAL-F [Concomitant]
     Dosage: UNK
  3. FOLLISTIM [Concomitant]
     Dosage: UNK
  4. REPRONEX [Concomitant]
     Dosage: UNK

REACTIONS (2)
  - Blood luteinising hormone abnormal [Unknown]
  - Inappropriate schedule of drug administration [Unknown]
